FAERS Safety Report 6292364-1 (Version None)
Quarter: 2009Q3

REPORT INFORMATION
  Report Type: 
  Country: None (occurrence: None)
  Receive Date: 20090731
  Receipt Date: 20090722
  Transmission Date: 20100115
  Serious: Yes (Other)
  Sender: FDA-Public Use
  Company Number: CA-B.I. PHARMACEUTICALS,INC./RIDGEFIELD-2009-DE-05051GD

PATIENT
  Age: 52 Year
  Sex: Male

DRUGS (20)
  1. NEVIRAPINE [Suspect]
     Indication: HIV INFECTION
  2. ABACAVIR [Suspect]
     Indication: HIV INFECTION
  3. ABACAVIR [Suspect]
  4. LAMIVUDINE [Suspect]
     Indication: HIV INFECTION
  5. LAMIVUDINE [Suspect]
  6. DARUNAVIR [Suspect]
     Indication: HIV INFECTION
  7. RITONAVIR [Suspect]
     Indication: HIV INFECTION
  8. RITONAVIR [Suspect]
  9. ETRAVIRINE [Suspect]
     Indication: HIV INFECTION
  10. RALTEGRAVIR [Suspect]
     Indication: HIV INFECTION
  11. ZIDOVUDINE [Suspect]
     Indication: HIV INFECTION
  12. DIDANOSINE [Suspect]
     Indication: HIV INFECTION
  13. STAVUDINE [Suspect]
     Indication: HIV INFECTION
  14. DELAVIRDINE [Suspect]
     Indication: HIV INFECTION
  15. EFAVIRENZ [Suspect]
     Indication: HIV INFECTION
  16. INDINIVIR SULFATE [Suspect]
     Indication: HIV INFECTION
  17. SAQUINAVIR [Suspect]
     Indication: HIV INFECTION
  18. NELFINAVIR [Suspect]
     Indication: HIV INFECTION
  19. LOPINAVIR [Suspect]
     Indication: HIV INFECTION
  20. TENOFOVIR [Suspect]
     Indication: HIV INFECTION

REACTIONS (4)
  - DIPLOPIA [None]
  - EYELID PTOSIS [None]
  - LIPODYSTROPHY ACQUIRED [None]
  - PROGRESSIVE EXTERNAL OPHTHALMOPLEGIA [None]
